FAERS Safety Report 7666184-7 (Version None)
Quarter: 2011Q3

REPORT INFORMATION
  Report Type: 
  Country: None (occurrence: None)
  Receive Date: 20110806
  Receipt Date: 20110601
  Transmission Date: 20111222
  Serious: No
  Sender: FDA-Public Use
  Company Number: US-ABBOTT-11P-163-0721121-00

PATIENT
  Sex: Female
  Weight: 67.646 kg

DRUGS (8)
  1. CLONAZEPAM [Concomitant]
     Indication: ANXIETY
  2. ASPIRIN [Concomitant]
     Indication: FLUSHING
  3. EFFEXOR [Concomitant]
     Indication: ANXIETY
  4. NIASPAN [Suspect]
     Indication: BLOOD CHOLESTEROL
     Dates: start: 20110321, end: 20110401
  5. ASPIRIN [Concomitant]
     Indication: PROPHYLAXIS
  6. NIASPAN [Suspect]
     Dates: start: 20110402
  7. NIASPAN [Suspect]
     Dates: start: 20110522
  8. XANAX [Concomitant]
     Indication: ANXIETY

REACTIONS (3)
  - PRURITUS [None]
  - HEADACHE [None]
  - ABDOMINAL PAIN UPPER [None]
